FAERS Safety Report 5107749-6 (Version None)
Quarter: 2006Q3

REPORT INFORMATION
  Report Type: 
  Country: None (occurrence: None)
  Receive Date: 20060914
  Receipt Date: 20060829
  Transmission Date: 20061208
  Serious: Yes (Hospitalization)
  Sender: FDA-Public Use
  Company Number: 2006090138

PATIENT
  Age: 72 Year
  Sex: Male

DRUGS (4)
  1. SUTENT [Suspect]
     Indication: GASTROINTESTINAL STROMAL TUMOUR
     Dosage: 50 MG (50 MG, 1 IN 1 D), ORAL
     Route: 048
     Dates: start: 20060529
  2. PHENOXYMETHYLPENICILLIN [Concomitant]
  3. FERROUS SULFATE TAB [Concomitant]
  4. TRIMEBUTINE MALEATE (TRIMEBUTINE MALEATE) [Concomitant]

REACTIONS (1)
  - NEUTROPENIA [None]
